FAERS Safety Report 9848072 (Version 1)
Quarter: 2013Q4

REPORT INFORMATION
  Report Type: Spontaneous
  Country: US (occurrence: None)
  Receive Date: 20131226
  Receipt Date: 20131226
  Transmission Date: 20140711
  Serious: Yes (Other)
  Sender: FDA-Public Use
  Company Number: PHEH2012US021626

PATIENT
  Age: 68 Year
  Sex: Male

DRUGS (7)
  1. VOLTAREN-XR [Suspect]
     Indication: BACK PAIN
     Dosage: 1 DF PER DAY, ORAL
     Route: 048
     Dates: start: 20090501, end: 20120220
  2. HYZAAR (HYDROCHLOROTHIAZIDE, LOSARTAN POTASSIUM), 100/25 MG? [Concomitant]
  3. IMDUR (ISOSORBIDE MONONITRATE) [Concomitant]
  4. LIPITOR (ATORVASTATIN CALCIUM), 20 MG [Concomitant]
  5. NEXIUM (AMOXICILLIN TRIHYDRATE, CLARITHROMYCIN, ESOMEPRAZOLE MAGNESIUM)? [Concomitant]
  6. ASMANEX (MOMETASONE FUROATE) INHALER [Concomitant]
  7. PLAVIX (CLOPIDOGREL BISULFATE) (CLOPIDOGREL BISULFATE) [Concomitant]

REACTIONS (2)
  - Gastrointestinal haemorrhage [None]
  - Haematochezia [None]
